FAERS Safety Report 17711584 (Version 2)
Quarter: 2020Q2

REPORT INFORMATION
  Report Type: Spontaneous
  Country: CN (occurrence: CN)
  Receive Date: 20200427
  Receipt Date: 20200603
  Transmission Date: 20200714
  Serious: Yes (Other)
  Sender: FDA-Public Use
  Company Number: CN-PFIZER INC-2020161997

PATIENT
  Age: 32 Year
  Sex: Female

DRUGS (5)
  1. SOLU-MEDROL [Suspect]
     Active Substance: METHYLPREDNISOLONE SODIUM SUCCINATE
     Dosage: 1000 MG (FOR 3 DAYS)
     Dates: start: 202004, end: 202004
  2. SOLU-MEDROL [Suspect]
     Active Substance: METHYLPREDNISOLONE SODIUM SUCCINATE
     Dosage: 40 MG, 1X/DAY (FOR 3 DAYS)
  3. SOLU-MEDROL [Suspect]
     Active Substance: METHYLPREDNISOLONE SODIUM SUCCINATE
     Dosage: 500 MG
     Dates: start: 20200401, end: 20200404
  4. SOLU-MEDROL [Suspect]
     Active Substance: METHYLPREDNISOLONE SODIUM SUCCINATE
     Dosage: 60 MG, 1X/DAY
     Dates: start: 202004
  5. SOLU-MEDROL [Suspect]
     Active Substance: METHYLPREDNISOLONE SODIUM SUCCINATE
     Dosage: 60 MG, 1X/DAY (FOR 3 DAYS)

REACTIONS (6)
  - Renal impairment [Unknown]
  - Platelet count decreased [Unknown]
  - Pulmonary alveolar haemorrhage [Unknown]
  - Therapeutic product effect incomplete [Unknown]
  - White blood cell count decreased [Unknown]
  - Red blood cell count decreased [Unknown]
